FAERS Safety Report 13781682 (Version 1)
Quarter: 2017Q3

REPORT INFORMATION
  Report Type: Spontaneous
  Country: GB (occurrence: GB)
  Receive Date: 20170724
  Receipt Date: 20170724
  Transmission Date: 20171127
  Serious: Yes (Life-Threatening, Hospitalization)
  Sender: FDA-Public Use
  Company Number: GB-PFIZER INC-3118950

PATIENT
  Age: 82 Year

DRUGS (9)
  1. METHOTREXATE SODIUM. [Suspect]
     Active Substance: METHOTREXATE SODIUM
     Indication: RHEUMATOID ARTHRITIS
     Dosage: 15 MG, 15 MG (SIX TABLETS ) TO BE TAKEN WEEKLY (WED) FREQ: 1 DAY; INTERVAL: 1
  2. OMEPRAZOLE. [Concomitant]
     Active Substance: OMEPRAZOLE
     Indication: PRODUCT USED FOR UNKNOWN INDICATION
     Dosage: 20 MG, FREQ: 1 DAY; INTERVAL: 1
  3. EZETIMIBE. [Concomitant]
     Active Substance: EZETIMIBE
     Indication: PRODUCT USED FOR UNKNOWN INDICATION
     Dosage: 10 MG, FREQ: 1 DAY; INTERVAL: 1
  4. CALCICHEW D3 [Concomitant]
     Active Substance: CALCIUM\CHOLECALCIFEROL
     Indication: PRODUCT USED FOR UNKNOWN INDICATION
     Dosage: 1 DF, FREQ: 2 DAY; INTERVAL: 1
  5. MONOMIL [Concomitant]
     Active Substance: ISOSORBIDE MONONITRATE
     Indication: PRODUCT USED FOR UNKNOWN INDICATION
     Dosage: 30 MG, FREQ: 1 DAY; INTERVAL: 1
  6. TAMSULOSIN [Concomitant]
     Active Substance: TAMSULOSIN
     Indication: PRODUCT USED FOR UNKNOWN INDICATION
     Dosage: 400 UG, MODIFIED RELEASE, FREQ: 4 DAY; INTERVAL: 1
  7. FOLIC ACID. [Concomitant]
     Active Substance: FOLIC ACID
     Indication: PRODUCT USED FOR UNKNOWN INDICATION
     Dosage: 5 MG, SUNDAY, TUESDAY AND THURSDAY,FREQ: 3 WEEK; INTERVAL: 1
  8. SALBUTAMOL [Concomitant]
     Active Substance: ALBUTEROL
     Indication: PRODUCT USED FOR UNKNOWN INDICATION
     Dosage: 200 UG, 2 PUFFS, 100 MICROGRAMS PER DOSE
     Route: 055
  9. PARACETAMOL [Concomitant]
     Active Substance: ACETAMINOPHEN
     Indication: PRODUCT USED FOR UNKNOWN INDICATION
     Dosage: TAKE 1OR 2 TABLETS FOUR TIMES A DAY WHEN REQUIRED, FREQ: AS NECESSARY

REACTIONS (5)
  - C-reactive protein increased [Unknown]
  - Neutropenic sepsis [Unknown]
  - Epistaxis [Unknown]
  - Gastrointestinal haemorrhage [Unknown]
  - Pancytopenia [Recovered/Resolved]
